FAERS Safety Report 12651305 (Version 1)
Quarter: 2016Q3

REPORT INFORMATION
  Report Type: Spontaneous
  Country: US (occurrence: US)
  Receive Date: 20160815
  Receipt Date: 20160815
  Transmission Date: 20161109
  Serious: No
  Sender: FDA-Public Use
  Company Number: US-BEH-2016072234

PATIENT
  Sex: Female
  Weight: 102.4 kg

DRUGS (24)
  1. ONDANSETRON [Concomitant]
     Active Substance: ONDANSETRON
  2. VITAMIN C [Concomitant]
     Active Substance: ASCORBIC ACID
  3. CELEXA [Concomitant]
     Active Substance: CITALOPRAM HYDROBROMIDE
  4. GLUCOSAMINE [Concomitant]
     Active Substance: GLUCOSAMINE
  5. METRONIDAZOLE. [Concomitant]
     Active Substance: METRONIDAZOLE
  6. PRENATAL                           /00231801/ [Concomitant]
     Active Substance: VITAMINS
  7. VITAMIN D [Concomitant]
     Active Substance: CHOLECALCIFEROL
  8. SYNTHROID [Concomitant]
     Active Substance: LEVOTHYROXINE SODIUM
  9. PREDNISONE. [Concomitant]
     Active Substance: PREDNISONE
  10. CALCIUM [Concomitant]
     Active Substance: CALCIUM
  11. HIZENTRA [Suspect]
     Active Substance: HUMAN IMMUNOGLOBULIN G
     Dosage: 13 G, QW
     Route: 058
     Dates: start: 20130221
  12. ZOLPIDEM [Concomitant]
     Active Substance: ZOLPIDEM\ZOLPIDEM TARTRATE
  13. PROLIA [Concomitant]
     Active Substance: DENOSUMAB
  14. HIZENTRA [Suspect]
     Active Substance: HUMAN IMMUNOGLOBULIN G
     Indication: IMMUNODEFICIENCY COMMON VARIABLE
     Route: 058
  15. HIZENTRA [Suspect]
     Active Substance: HUMAN IMMUNOGLOBULIN G
     Indication: OSTEOPOROSIS
     Dosage: UNK
     Route: 058
  16. BUMETANIDE. [Concomitant]
     Active Substance: BUMETANIDE
  17. FENTANYL. [Concomitant]
     Active Substance: FENTANYL
  18. DULOXETINE. [Concomitant]
     Active Substance: DULOXETINE
  19. DALIRESP [Concomitant]
     Active Substance: ROFLUMILAST
  20. ACETAMINOPHEN AND CODEINE [Concomitant]
     Active Substance: ACETAMINOPHEN\CODEINE PHOSPHATE
  21. CYCLOBENZAPRINE [Concomitant]
     Active Substance: CYCLOBENZAPRINE
  22. FINACEA [Concomitant]
     Active Substance: AZELAIC ACID
  23. WELLBUTRIN [Concomitant]
     Active Substance: BUPROPION HYDROCHLORIDE
  24. OMEPRAZOLE. [Concomitant]
     Active Substance: OMEPRAZOLE

REACTIONS (2)
  - Bronchitis [Unknown]
  - Sinusitis [Unknown]
